FAERS Safety Report 24091886 (Version 1)
Quarter: 2024Q3

REPORT INFORMATION
  Report Type: Spontaneous
  Country: US (occurrence: US)
  Receive Date: 20240715
  Receipt Date: 20240715
  Transmission Date: 20241016
  Serious: No
  Sender: PERRIGO
  Company Number: US-PERRIGO-24US000859

PATIENT
  Age: 68 Year
  Sex: Female
  Weight: 55.329 kg

DRUGS (6)
  1. MINOXIDIL [Suspect]
     Active Substance: MINOXIDIL
     Indication: Alopecia
     Dosage: 1 ML, QD
     Route: 061
     Dates: start: 202302, end: 202303
  2. MINOXIDIL [Suspect]
     Active Substance: MINOXIDIL
     Dosage: 1 ML, QD
     Route: 061
     Dates: start: 202306, end: 202306
  3. MINOXIDIL [Suspect]
     Active Substance: MINOXIDIL
     Dosage: 1 ML, QD
     Route: 061
     Dates: start: 202311, end: 202311
  4. MINOXIDIL [Suspect]
     Active Substance: MINOXIDIL
     Dosage: 1 ML, QD
     Route: 061
     Dates: start: 20240117, end: 20240117
  5. SYNTHROID [Concomitant]
     Active Substance: LEVOTHYROXINE SODIUM
     Indication: Thyroid disorder
     Dosage: UNK
     Route: 065
  6. ROSUVASTATIN [Concomitant]
     Active Substance: ROSUVASTATIN
     Indication: Blood cholesterol abnormal
     Dosage: UNK
     Route: 065

REACTIONS (2)
  - Pruritus [Unknown]
  - Off label use [Unknown]

NARRATIVE: CASE EVENT DATE: 20230201
